FAERS Safety Report 5346736-X (Version None)
Quarter: 2007Q2

REPORT INFORMATION
  Report Type: 
  Country: None (occurrence: None)
  Receive Date: 20070604
  Receipt Date: 20070521
  Transmission Date: 20071010
  Serious: Yes (Death, Hospitalization)
  Sender: FDA-Public Use
  Company Number: DSM-2007-00212

PATIENT
  Age: 61 Year
  Sex: Male

DRUGS (2)
  1. OLMESARTAN MEDOXOMIL AND HYDROCHLOROTHIZIDE [Suspect]
     Indication: HYPERTENSION
     Dosage: (1 IN 1 D), ORAL
     Route: 048
     Dates: end: 20070316
  2. TEMERIT (NEBIVOLOL) [Concomitant]

REACTIONS (12)
  - ACUTE RESPIRATORY DISTRESS SYNDROME [None]
  - CARDIAC FAILURE [None]
  - DYSPNOEA [None]
  - HAEMODYNAMIC INSTABILITY [None]
  - INFLUENZA [None]
  - INTERSTITIAL LUNG DISEASE [None]
  - LEFT VENTRICULAR HYPERTROPHY [None]
  - PULMONARY FIBROSIS [None]
  - RENAL FAILURE [None]
  - RESPIRATORY FAILURE [None]
  - RIGHT VENTRICULAR FAILURE [None]
  - SHOCK [None]
